FAERS Safety Report 9817875 (Version 1)
Quarter: 2014Q1

REPORT INFORMATION
  Report Type: Spontaneous
  Country: US (occurrence: None)
  Receive Date: 20140110
  Receipt Date: 20140110
  Transmission Date: 20141002
  Serious: Yes (Other)
  Sender: FDA-Public Use
  Company Number: None

PATIENT
  Age: 14 Year
  Sex: Male
  Weight: 37.1 kg

DRUGS (2)
  1. METHYLPHENIDATE ER [Suspect]
     Indication: ATTENTION DEFICIT/HYPERACTIVITY DISORDER
     Dosage: 1 PILL QD ORAL
     Route: 048
  2. ZYRTEC [Concomitant]

REACTIONS (2)
  - Product substitution issue [None]
  - Drug ineffective [None]
